FAERS Safety Report 5854617-8 (Version None)
Quarter: 2008Q3

REPORT INFORMATION
  Report Type: 
  Country: None (occurrence: None)
  Receive Date: 20080822
  Receipt Date: 20071024
  Transmission Date: 20090109
  Serious: No
  Sender: FDA-Public Use
  Company Number: US-ABBOTT-07P-163-0422428-00

PATIENT
  Sex: Female

DRUGS (3)
  1. SYNTHROID [Suspect]
     Indication: THYROID DISORDER
     Route: 048
  2. VICODIN [Suspect]
     Indication: PAIN
     Dosage: 7.5/500MG
     Route: 048
     Dates: start: 20071009
  3. VICODIN [Suspect]
     Dosage: 5/500 MG

REACTIONS (5)
  - BLOOD THYROID STIMULATING HORMONE INCREASED [None]
  - DRUG INEFFECTIVE [None]
  - FALL [None]
  - HYPOTENSION [None]
  - SYNCOPE [None]
